FAERS Safety Report 4941512-1 (Version None)
Quarter: 2006Q1

REPORT INFORMATION
  Report Type: 
  Country: None (occurrence: None)
  Receive Date: 20060310
  Receipt Date: 20060310
  Transmission Date: 20060701
  Serious: Yes (Other)
  Sender: FDA-Public Use
  Company Number: None

PATIENT

DRUGS (1)
  1. ULTRAVIST 300 [Suspect]
     Indication: COMPUTERISED TOMOGRAM HEAD
     Dosage: 125CC  IV
     Route: 042

REACTIONS (3)
  - CHEST DISCOMFORT [None]
  - FEELING HOT [None]
  - OXYGEN SATURATION DECREASED [None]
